FAERS Safety Report 15555619 (Version 1)
Quarter: 2018Q4

REPORT INFORMATION
  Report Type: Spontaneous
  Country: US (occurrence: US)
  Receive Date: 20181026
  Receipt Date: 20181026
  Transmission Date: 20190205
  Serious: Yes (Other)
  Sender: FDA-Public Use
  Company Number: US-JNJFOC-20181026841

PATIENT
  Sex: Female
  Weight: 49.9 kg

DRUGS (15)
  1. ALBUTEROL. [Concomitant]
     Active Substance: ALBUTEROL
     Indication: ASTHMA
     Dosage: AS NEEDED
     Route: 055
     Dates: start: 1992
  2. ZOFRAN [Concomitant]
     Active Substance: ONDANSETRON HYDROCHLORIDE
     Indication: NAUSEA
     Dosage: AS NEEDED EVERY 4 HOURS
     Route: 065
     Dates: start: 2014
  3. XANAX [Concomitant]
     Active Substance: ALPRAZOLAM
     Indication: ANXIETY
     Dosage: AS NEEDED EVERY 4 HOURS
     Route: 065
     Dates: start: 201702
  4. PHENERGAN [Concomitant]
     Active Substance: PROMETHAZINE HYDROCHLORIDE
     Indication: NAUSEA
     Dosage: AS NEEDED EVERY 4 HOURS
     Route: 065
     Dates: start: 201704
  5. TRAMADOL. [Concomitant]
     Active Substance: TRAMADOL
     Indication: PAIN
     Dosage: EVERY 4 HOURS AS NEEDED
     Route: 065
     Dates: start: 201805
  6. CERAMAX [Concomitant]
     Indication: SKIN DISORDER
     Route: 061
     Dates: start: 201706
  7. TIZANIDINE. [Concomitant]
     Active Substance: TIZANIDINE
     Indication: MUSCLE SPASMS
     Dosage: EVERY 4 HOURS AS NEEDED
     Route: 065
     Dates: start: 201702
  8. AMBIEN [Concomitant]
     Active Substance: ZOLPIDEM TARTRATE
     Indication: SLEEP DISORDER THERAPY
     Route: 065
     Dates: start: 201706
  9. CLOBETASOL PROPIONATE. [Concomitant]
     Active Substance: CLOBETASOL PROPIONATE
     Indication: SKIN DISORDER
     Route: 061
     Dates: start: 201706
  10. LYRICA [Concomitant]
     Active Substance: PREGABALIN
     Indication: FIBROMYALGIA
     Route: 065
     Dates: start: 2016
  11. ZOLOFT [Concomitant]
     Active Substance: SERTRALINE HYDROCHLORIDE
     Indication: DEPRESSION
     Route: 065
     Dates: start: 201702
  12. LOMOTIL [Concomitant]
     Active Substance: ATROPINE SULFATE\DIPHENOXYLATE HYDROCHLORIDE
     Indication: DIARRHOEA
     Dosage: ONCE EVERY 4 HOURS AS NEEDED
     Route: 065
     Dates: start: 201704
  13. LEVOTHYROXINE. [Concomitant]
     Active Substance: LEVOTHYROXINE
     Indication: HYPOTHYROIDISM
     Route: 065
     Dates: start: 201807
  14. STELARA [Suspect]
     Active Substance: USTEKINUMAB
     Indication: CROHN^S DISEASE
     Route: 058
     Dates: start: 201804
  15. VITAMIN B [Concomitant]
     Active Substance: VITAMIN B
     Indication: ASTHENIA
     Route: 065
     Dates: start: 201807

REACTIONS (2)
  - Deafness [Not Recovered/Not Resolved]
  - Cognitive disorder [Not Recovered/Not Resolved]
